FAERS Safety Report 12889515 (Version 1)
Quarter: 2016Q4

REPORT INFORMATION
  Report Type: Spontaneous
  Country: US (occurrence: US)
  Receive Date: 20161027
  Receipt Date: 20161027
  Transmission Date: 20170207
  Serious: No
  Sender: FDA-Public Use
  Company Number: US-KEDRION-2016-18

PATIENT
  Age: 0 Day
  Sex: Male

DRUGS (1)
  1. RHOGAM [Suspect]
     Active Substance: HUMAN RHO(D) IMMUNE GLOBULIN
     Indication: RHESUS ANTIGEN NEGATIVE
     Route: 064
     Dates: start: 201511, end: 201511

REACTIONS (3)
  - Rhesus haemolytic disease of newborn [Recovered/Resolved]
  - Rhesus antibodies positive [Unknown]
  - Haematocrit decreased [Recovered/Resolved]

NARRATIVE: CASE EVENT DATE: 20160130
